FAERS Safety Report 18755373 (Version 1)
Quarter: 2021Q1

REPORT INFORMATION
  Report Type: Spontaneous
  Country: US (occurrence: US)
  Receive Date: 20210119
  Receipt Date: 20210119
  Transmission Date: 20210419
  Serious: No
  Sender: FDA-Public Use
  Company Number: US-GRANULES-US-2021GRASPO00009

PATIENT
  Age: 66 Year
  Sex: Male

DRUGS (5)
  1. VALSARTAN. [Concomitant]
     Active Substance: VALSARTAN
     Indication: HYPERTENSION
     Route: 065
  2. CARBIDOPA + L?DOPA [Concomitant]
     Active Substance: CARBIDOPA\LEVODOPA
     Indication: PARKINSON^S DISEASE
     Route: 065
  3. CARBIDOPA + L?DOPA [Concomitant]
     Active Substance: CARBIDOPA\LEVODOPA
     Route: 065
  4. ACETAMINOPHEN. [Suspect]
     Active Substance: ACETAMINOPHEN
     Indication: MYALGIA
     Dates: start: 20210106
  5. ACETAMINOPHEN. [Suspect]
     Active Substance: ACETAMINOPHEN
     Indication: HEADACHE
     Route: 048

REACTIONS (2)
  - Abdominal distension [Unknown]
  - Abdominal pain upper [Unknown]
